FAERS Safety Report 6455395-4 (Version None)
Quarter: 2009Q4

REPORT INFORMATION
  Report Type: 
  Country: None (occurrence: None)
  Receive Date: 20091125
  Receipt Date: 20090817
  Transmission Date: 20100525
  Serious: No
  Sender: FDA-Public Use
  Company Number: US-ABBOTT-09P-163-0592798-00

PATIENT
  Sex: Female
  Weight: 89.438 kg

DRUGS (11)
  1. SIMCOR [Suspect]
     Indication: BLOOD CHOLESTEROL INCREASED
     Dates: start: 20090803
  2. ASPIRIN [Concomitant]
     Indication: THROMBOSIS PROPHYLAXIS
  3. CELEBREX [Concomitant]
     Indication: DRUG USE FOR UNKNOWN INDICATION
  4. ROBAXIN [Concomitant]
     Indication: DRUG USE FOR UNKNOWN INDICATION
  5. CLONOPIN [Concomitant]
     Indication: RESTLESS LEGS SYNDROME
  6. AMBIEN [Concomitant]
     Indication: INSOMNIA
  7. VICODIN [Concomitant]
     Indication: INTERVERTEBRAL DISC DEGENERATION
  8. VICODIN [Concomitant]
     Indication: PAIN MANAGEMENT
  9. LISINOPRIL [Concomitant]
     Indication: HYPERTENSION
  10. VALIUM [Concomitant]
     Indication: MUSCLE SPASMS
  11. LYRICA [Concomitant]
     Indication: NEURALGIA

REACTIONS (4)
  - DIARRHOEA [None]
  - MIGRAINE [None]
  - NAUSEA [None]
  - OESOPHAGEAL DISCOMFORT [None]
